FAERS Safety Report 12765452 (Version 1)
Quarter: 2016Q3

REPORT INFORMATION
  Report Type: Report from Study
  Country: DE (occurrence: DE)
  Receive Date: 20160921
  Receipt Date: 20160921
  Transmission Date: 20161109
  Serious: Yes (Hospitalization)
  Sender: FDA-Public Use
  Company Number: US-ASTRAZENECA-2016SF00121

PATIENT
  Sex: Female

DRUGS (2)
  1. SYNAGIS [Suspect]
     Active Substance: PALIVIZUMAB
     Indication: CARDIAC FAILURE
     Route: 030
     Dates: start: 20081128, end: 20090227
  2. SYNAGIS [Suspect]
     Active Substance: PALIVIZUMAB
     Indication: CARDIAC FAILURE
     Dosage: 150 MG
     Route: 030
     Dates: start: 20090327, end: 20090327

REACTIONS (1)
  - Bronchitis [Unknown]
